FAERS Safety Report 8321480-5 (Version None)
Quarter: 2012Q2

REPORT INFORMATION
  Report Type: 
  Country: None (occurrence: None)
  Receive Date: 20120430
  Receipt Date: 20120430
  Transmission Date: 20120825
  Serious: Yes (Other)
  Sender: FDA-Public Use
  Company Number: None

PATIENT
  Sex: Male
  Weight: 87.089 kg

DRUGS (2)
  1. CARISOPRODOL [Suspect]
     Indication: MUSCLE SPASMS
     Dosage: 3X
     Route: 048
     Dates: start: 20120427, end: 20120428
  2. CARISOPRODOL [Suspect]
     Indication: PAIN
     Dosage: 3X
     Route: 048
     Dates: start: 20120427, end: 20120428

REACTIONS (6)
  - PRODUCT QUALITY ISSUE [None]
  - PRODUCT COUNTERFEIT [None]
  - PRODUCT TASTE ABNORMAL [None]
  - PRODUCT ODOUR ABNORMAL [None]
  - DRUG INEFFECTIVE [None]
  - PRODUCT SUBSTITUTION ISSUE [None]
